FAERS Safety Report 15343849 (Version 1)
Quarter: 2018Q3

REPORT INFORMATION
  Report Type: Spontaneous
  Country: US (occurrence: US)
  Receive Date: 20180903
  Receipt Date: 20180903
  Transmission Date: 20181010
  Serious: Yes (Other)
  Sender: FDA-Public Use
  Company Number: US-GLAXOSMITHKLINE-US2018156183

PATIENT
  Sex: Female

DRUGS (2)
  1. KEYTRUDA [Concomitant]
     Active Substance: PEMBROLIZUMAB
  2. ADVAIR DISKUS [Suspect]
     Active Substance: FLUTICASONE PROPIONATE\SALMETEROL XINAFOATE
     Indication: CHRONIC OBSTRUCTIVE PULMONARY DISEASE
     Dosage: 2 PUFF(S), 1D
     Route: 055

REACTIONS (6)
  - Lung cancer metastatic [Recovering/Resolving]
  - Lung disorder [Unknown]
  - Lung neoplasm malignant [Recovering/Resolving]
  - Metastases to adrenals [Unknown]
  - Adrenal mass [Unknown]
  - Adrenal disorder [Unknown]

NARRATIVE: CASE EVENT DATE: 2016
